FAERS Safety Report 12900955 (Version 1)
Quarter: 2016Q4

REPORT INFORMATION
  Report Type: Spontaneous
  Country: CR (occurrence: CR)
  Receive Date: 20161101
  Receipt Date: 20161101
  Transmission Date: 20170207
  Serious: No
  Sender: FDA-Public Use
  Company Number: CR-SA-2016SA196619

PATIENT
  Age: 3 Day
  Sex: Male
  Weight: 3.1 kg

DRUGS (1)
  1. ARAVA [Suspect]
     Active Substance: LEFLUNOMIDE
     Indication: RHEUMATOID ARTHRITIS
     Route: 064
     Dates: end: 201602

REACTIONS (1)
  - Foetal exposure timing unspecified [Unknown]
